FAERS Safety Report 9803319 (Version 1)
Quarter: 2014Q1

REPORT INFORMATION
  Report Type: Spontaneous
  Country: US (occurrence: US)
  Receive Date: 20140108
  Receipt Date: 20140108
  Transmission Date: 20141002
  Serious: Yes (Death, Other)
  Sender: FDA-Public Use
  Company Number: US-UCBSA-108388

PATIENT
  Age: 71 Year
  Sex: Male

DRUGS (6)
  1. OMEPRAZOLE [Suspect]
  2. ATENOLOL [Suspect]
  3. TEMAZEPAM [Suspect]
  4. OXYCODONE [Suspect]
  5. LEVOTHYROXINE [Suspect]
  6. CLONAZEPAM [Suspect]

REACTIONS (1)
  - Completed suicide [Fatal]
